FAERS Safety Report 7045242-4 (Version None)
Quarter: 2010Q4

REPORT INFORMATION
  Report Type: 
  Country: None (occurrence: None)
  Receive Date: 20101014
  Receipt Date: 20100727
  Transmission Date: 20110411
  Serious: No
  Sender: FDA-Public Use
  Company Number: US-ALLERGAN-1009537US

PATIENT
  Age: 61 Year
  Sex: Female

DRUGS (6)
  1. LATISSE [Suspect]
     Indication: GROWTH OF EYELASHES
     Dosage: 1 GTT, QHS
     Route: 061
     Dates: start: 20100201, end: 20100706
  2. SYNTHROID [Concomitant]
  3. ESTROGEN [Suspect]
     Route: 062
  4. ASPIRIN [Concomitant]
  5. MULTIPLE VITAMINS [Concomitant]
  6. SUPPLEMENTS [Concomitant]

REACTIONS (1)
  - ARCUS LIPOIDES [None]
